FAERS Safety Report 17956214 (Version 2)
Quarter: 2020Q3

REPORT INFORMATION
  Report Type: Spontaneous
  Country: US (occurrence: US)
  Receive Date: 20200629
  Receipt Date: 20200820
  Transmission Date: 20201103
  Serious: No
  Sender: FDA-Public Use
  Company Number: US-VERTEX PHARMACEUTICALS-2020-013647

PATIENT
  Sex: Female
  Weight: 22 kg

DRUGS (9)
  1. TOBI [Concomitant]
     Active Substance: TOBRAMYCIN
     Dosage: UNK, BID
     Route: 055
  2. HYPERSAL [Concomitant]
     Active Substance: SODIUM CHLORIDE
     Dosage: VIAL?NEB
     Route: 055
  3. CAYSTON [Concomitant]
     Active Substance: AZTREONAM
     Dosage: UNK, TID
     Route: 055
  4. SYMDEKO [Suspect]
     Active Substance: IVACAFTOR\TEZACAFTOR
     Indication: CYSTIC FIBROSIS
     Dosage: 50 MG TEZACAFTOR/75 MG IVACAFTOR; 75 MG IVACAFTOR, BID
     Route: 048
  5. ALBUTEROL SULFATE. [Concomitant]
     Active Substance: ALBUTEROL SULFATE
     Dosage: UNK
  6. CLONIDINE HCL [Concomitant]
     Active Substance: CLONIDINE HYDROCHLORIDE
     Dosage: UNK
  7. PREVACID [Concomitant]
     Active Substance: LANSOPRAZOLE
     Dosage: UNK
     Route: 055
  8. PULMOZYME [Concomitant]
     Active Substance: DORNASE ALFA
     Dosage: UNK, QD
     Route: 055
  9. VIOKACE [Concomitant]
     Active Substance: PANCRELIPASE AMYLASE\PANCRELIPASE LIPASE\PANCRELIPASE PROTEASE
     Dosage: 10.4?39.2K

REACTIONS (2)
  - Infective pulmonary exacerbation of cystic fibrosis [Unknown]
  - Infection [Unknown]
